FAERS Safety Report 5752757-5 (Version None)
Quarter: 2008Q2

REPORT INFORMATION
  Report Type: 
  Country: None (occurrence: None)
  Receive Date: 20080529
  Receipt Date: 20080521
  Transmission Date: 20081010
  Serious: Yes (Hospitalization)
  Sender: FDA-Public Use
  Company Number: AR-PFIZER INC-2006075333

PATIENT
  Sex: Male
  Weight: 117 kg

DRUGS (8)
  1. SU-011,248 [Suspect]
     Indication: METASTATIC RENAL CELL CARCINOMA
     Route: 048
  2. SU-011,248 [Suspect]
     Indication: RENAL CELL CARCINOMA
  3. LOSARTAN POTASSIUM [Concomitant]
     Route: 048
  4. ATENOLOL [Concomitant]
     Route: 048
  5. ESCITALOPRAM [Concomitant]
     Route: 048
  6. OMEPRAZOLE [Concomitant]
     Route: 048
  7. DIAZEPAM [Concomitant]
     Route: 048
  8. DICLOFENAC [Concomitant]
     Route: 048

REACTIONS (1)
  - NECROTISING FASCIITIS [None]
